FAERS Safety Report 9785803 (Version 1)
Quarter: 2013Q4

REPORT INFORMATION
  Report Type: Spontaneous
  Country: FR (occurrence: FR)
  Receive Date: 20131227
  Receipt Date: 20131227
  Transmission Date: 20140711
  Serious: Yes (Hospitalization, Other)
  Sender: FDA-Public Use
  Company Number: FR-PFIZER INC-2013366018

PATIENT
  Age: 33 Year
  Sex: Female

DRUGS (7)
  1. EFFEXOR LP [Suspect]
     Dosage: 37.5 MG, 2X/DAY
     Route: 048
     Dates: end: 20131119
  2. IXPRIM [Suspect]
     Indication: DYSMENORRHOEA
     Dosage: 37.5 MG/325 MG, 2 DAYS PER MONTH
     Route: 048
     Dates: end: 20131119
  3. CONTRAMAL [Suspect]
     Indication: DYSMENORRHOEA
     Dosage: 50 MG, TWO DAYS PER MONTH
     Route: 048
     Dates: end: 20131119
  4. MONOCRIXO LP [Suspect]
     Dosage: 200, 5 DAY WEEKLY
  5. IMIGRANE [Concomitant]
     Dosage: UNK, PUNCTUAL INTAKE
  6. PROPRANOLOL [Concomitant]
     Dosage: 0.5 TABLET DAILY
  7. ANTADYS [Concomitant]
     Indication: DYSMENORRHOEA
     Dosage: 2 DAYS PER MONTH, EVERY 2 OR 3 HOURS MINIMUM

REACTIONS (4)
  - Tonic convulsion [Recovered/Resolved]
  - Meningoencephalitis herpetic [Recovering/Resolving]
  - Drug dependence [Unknown]
  - Drug withdrawal syndrome [Unknown]
